FAERS Safety Report 9361165 (Version 1)
Quarter: 2013Q2

REPORT INFORMATION
  Report Type: Spontaneous
  Country: FR (occurrence: FR)
  Receive Date: 20130621
  Receipt Date: 20130621
  Transmission Date: 20140414
  Serious: Yes (Hospitalization)
  Sender: FDA-Public Use
  Company Number: FR-PFIZER INC-2013185012

PATIENT
  Age: 86 Year
  Sex: Male

DRUGS (9)
  1. TENORMIN [Suspect]
     Dosage: 50 MG, 1X/DAY
     Route: 048
     Dates: start: 20110926, end: 20121117
  2. PLAVIX [Concomitant]
     Dosage: 75 MG, UNK
     Route: 065
  3. SIMVASTATIN [Concomitant]
     Dosage: UNK
     Route: 065
  4. METFORMIN [Concomitant]
     Dosage: UNK
     Route: 065
  5. APROVEL [Concomitant]
     Dosage: 300 MG, UNK
     Route: 065
  6. GLICLAZIDE [Concomitant]
     Dosage: UNK
     Route: 065
  7. EUPANTOL [Concomitant]
     Dosage: 40 MG UNK
     Route: 065
  8. TARDYFERON [Concomitant]
     Dosage: 80 MG, UNK
     Route: 065
  9. IMOVANE [Concomitant]
     Dosage: UNK
     Route: 065

REACTIONS (4)
  - Malaise [Recovered/Resolved]
  - Flushing [Recovered/Resolved]
  - Renal failure [Recovered/Resolved]
  - Bradycardia [Recovered/Resolved]
